FAERS Safety Report 12518316 (Version 1)
Quarter: 2016Q2

REPORT INFORMATION
  Report Type: Spontaneous
  Country: EC (occurrence: EC)
  Receive Date: 20160630
  Receipt Date: 20160630
  Transmission Date: 20160815
  Serious: Yes (Life-Threatening)
  Sender: FDA-Public Use
  Company Number: EC-LHC-2016100

PATIENT
  Age: 2 Day
  Sex: Male

DRUGS (1)
  1. OXIGENO GASEOSO MEDICINAL [Suspect]
     Active Substance: OXYGEN
     Indication: OXYGEN SATURATION DECREASED
     Dates: start: 20160615

REACTIONS (2)
  - Product quality issue [None]
  - Oxygen saturation decreased [Recovered/Resolved]

NARRATIVE: CASE EVENT DATE: 20160617
